FAERS Safety Report 18186093 (Version 1)
Quarter: 2020Q3

REPORT INFORMATION
  Report Type: Spontaneous
  Country: FR (occurrence: FR)
  Receive Date: 20200824
  Receipt Date: 20200824
  Transmission Date: 20201103
  Serious: Yes (Hospitalization)
  Sender: FDA-Public Use
  Company Number: FR-ROCHE-2663777

PATIENT
  Age: 64 Year
  Sex: Female
  Weight: 83.5 kg

DRUGS (13)
  1. NEORAL [Suspect]
     Active Substance: CYCLOSPORINE
     Route: 048
  2. CERTICAN [Suspect]
     Active Substance: EVEROLIMUS
     Indication: TRANSPLANT
     Route: 048
     Dates: start: 20200617, end: 20200721
  3. NEORAL [Suspect]
     Active Substance: CYCLOSPORINE
     Indication: TRANSPLANT
     Route: 048
  4. LEVOTHYROXINE. [Concomitant]
     Active Substance: LEVOTHYROXINE
  5. ABASAGLAR [Concomitant]
     Active Substance: INSULIN GLARGINE
  6. ROVALCYTE [Suspect]
     Active Substance: VALGANCICLOVIR HYDROCHLORIDE
     Indication: PROPHYLAXIS
     Route: 048
     Dates: start: 20200514, end: 20200721
  7. ACIDE FOLIQUE [Concomitant]
     Active Substance: FOLIC ACID
  8. LERCANIDIPINE [Concomitant]
     Active Substance: LERCANIDIPINE
  9. CHOLECALCIFEROL [Concomitant]
     Active Substance: CHOLECALCIFEROL
  10. TARDYFERON [Concomitant]
     Active Substance: FERROUS SULFATE
  11. URAPIDIL [Concomitant]
     Active Substance: URAPIDIL
  12. NOVORAPID [Concomitant]
     Active Substance: INSULIN ASPART
  13. LANSOPRAZOLE. [Concomitant]
     Active Substance: LANSOPRAZOLE

REACTIONS (4)
  - Hypertrichosis [Not Recovered/Not Resolved]
  - Pancytopenia [Recovering/Resolving]
  - Dyspnoea exertional [Recovering/Resolving]
  - Asthenia [Recovering/Resolving]

NARRATIVE: CASE EVENT DATE: 20200716
